FAERS Safety Report 5175326-7 (Version None)
Quarter: 2006Q4

REPORT INFORMATION
  Report Type: 
  Country: None (occurrence: None)
  Receive Date: 20061215
  Receipt Date: 20061205
  Transmission Date: 20070319
  Serious: Yes (Other)
  Sender: FDA-Public Use
  Company Number: 2006SE06530

PATIENT
  Age: 49 Year
  Sex: Female

DRUGS (1)
  1. ATACAND [Suspect]
     Indication: HYPERTENSION

REACTIONS (1)
  - PANCREATITIS [None]
